FAERS Safety Report 16444217 (Version 1)
Quarter: 2019Q2

REPORT INFORMATION
  Report Type: Spontaneous
  Country: FR (occurrence: FR)
  Receive Date: 20190618
  Receipt Date: 20190618
  Transmission Date: 20190711
  Serious: Yes (Hospitalization)
  Sender: FDA-Public Use
  Company Number: FR-ROCHE-2337270

PATIENT
  Age: 48 Year
  Sex: Female
  Weight: 53 kg

DRUGS (5)
  1. THIAMINE. [Concomitant]
     Active Substance: THIAMINE
  2. DIFFU K [Suspect]
     Active Substance: POTASSIUM CHLORIDE
     Indication: HYPOKALAEMIA
     Route: 048
     Dates: start: 20190419, end: 20190420
  3. PYRIDOXINE HYDROCHLORIDE. [Suspect]
     Active Substance: PYRIDOXINE HYDROCHLORIDE
     Indication: PROPHYLAXIS AGAINST ALCOHOLIC WITHDRAWAL SYNDROME
     Route: 042
     Dates: start: 20190420, end: 20190503
  4. BEVITINE [Suspect]
     Active Substance: THIAMINE HYDROCHLORIDE
     Indication: PROPHYLAXIS AGAINST ALCOHOLIC WITHDRAWAL SYNDROME
     Route: 042
     Dates: start: 20190419, end: 20190503
  5. VALIUM [Suspect]
     Active Substance: DIAZEPAM
     Indication: PROPHYLAXIS AGAINST ALCOHOLIC WITHDRAWAL SYNDROME
     Route: 042
     Dates: start: 20190419, end: 20190425

REACTIONS (3)
  - Acute generalised exanthematous pustulosis [Recovered/Resolved]
  - Face oedema [Recovered/Resolved]
  - Hypotension [Recovered/Resolved]

NARRATIVE: CASE EVENT DATE: 20190420
